FAERS Safety Report 4964789-5 (Version None)
Quarter: 2006Q2

REPORT INFORMATION
  Report Type: 
  Country: None (occurrence: None)
  Receive Date: 20060406
  Receipt Date: 20060313
  Transmission Date: 20061013
  Serious: Yes (Other)
  Sender: FDA-Public Use
  Company Number: BR-ROCHE-440036

PATIENT
  Age: 6 Year
  Sex: Female
  Weight: 22 kg

DRUGS (5)
  1. RIVOTRIL [Suspect]
     Indication: EPILEPSY
     Route: 050
     Dates: start: 20000315, end: 20060315
  2. RIVOTRIL [Suspect]
     Route: 050
     Dates: start: 20060315, end: 20060315
  3. RIVOTRIL [Suspect]
     Route: 050
     Dates: start: 20060315
  4. TOPAMAX [Concomitant]
     Indication: EPILEPSY
     Route: 050
  5. GARDENAL [Concomitant]
     Indication: EPILEPSY
     Route: 050

REACTIONS (5)
  - BRADYCARDIA [None]
  - COORDINATION ABNORMAL [None]
  - OXYGEN SATURATION DECREASED [None]
  - PALLOR [None]
  - PETIT MAL EPILEPSY [None]
